FAERS Safety Report 4403798-1 (Version None)
Quarter: 2004Q3

REPORT INFORMATION
  Report Type: 
  Country: None (occurrence: None)
  Receive Date: 20040719
  Receipt Date: 20040409
  Transmission Date: 20050211
  Serious: Yes (Hospitalization)
  Sender: FDA-Public Use
  Company Number: DRON00204001047

PATIENT
  Age: 53 Year
  Sex: Female
  Weight: 59.09 kg

DRUGS (5)
  1. MARINOL [Suspect]
     Indication: POST PROCEDURAL NAUSEA
     Dosage: 2.5 MG BID PO
     Route: 048
     Dates: start: 20040408, end: 20040408
  2. MARINOL [Suspect]
     Indication: POST PROCEDURAL VOMITING
     Dosage: 2.5 MG BID PO
     Route: 048
     Dates: start: 20040408, end: 20040408
  3. ONDANSETRON HCL [Suspect]
     Indication: POST PROCEDURAL NAUSEA
     Dosage: 16 MG ONCE IV
     Route: 042
     Dates: start: 20040408, end: 20040408
  4. ONDANSETRON HCL [Suspect]
     Indication: POST PROCEDURAL VOMITING
     Dosage: 16 MG ONCE IV
     Route: 042
     Dates: start: 20040408, end: 20040408
  5. DEXAMETHASONE [Suspect]
     Indication: PROPHYLACTIC CHEMOTHERAPY
     Dosage: 20 MG DAILY PO
     Route: 048
     Dates: start: 20040408, end: 20040408

REACTIONS (2)
  - CHEST PAIN [None]
  - HEADACHE [None]
